FAERS Safety Report 7597056-4 (Version None)
Quarter: 2011Q3

REPORT INFORMATION
  Report Type: 
  Country: None (occurrence: None)
  Receive Date: 20110708
  Receipt Date: 20110706
  Transmission Date: 20111222
  Serious: Yes (Other)
  Sender: FDA-Public Use
  Company Number: KR-PFIZER INC-2011150738

PATIENT
  Age: 75 Year
  Sex: Male

DRUGS (3)
  1. CARDURA [Suspect]
     Dosage: UNK
     Route: 048
     Dates: start: 20110511
  2. CARDURA [Suspect]
     Indication: BENIGN PROSTATIC HYPERPLASIA
     Dosage: UNK
     Route: 048
     Dates: start: 20010301, end: 20030501
  3. CARDURA [Suspect]
     Dosage: UNK
     Route: 048
     Dates: start: 20110704

REACTIONS (3)
  - ABDOMINAL DISTENSION [None]
  - DYSPNOEA [None]
  - DIARRHOEA [None]
